FAERS Safety Report 6211567-5 (Version None)
Quarter: 2009Q2

REPORT INFORMATION
  Report Type: 
  Country: None (occurrence: None)
  Receive Date: 20090528
  Receipt Date: 20090512
  Transmission Date: 20091009
  Serious: Yes (Hospitalization)
  Sender: FDA-Public Use
  Company Number: 2009001443

PATIENT
  Age: 85 Year
  Sex: Male

DRUGS (3)
  1. TARCEVA [Suspect]
     Indication: LUNG CANCER METASTATIC
     Dosage: 100 MG, QD, ORAL
     Route: 048
  2. PROTONIX [Concomitant]
  3. STEROIDS [Concomitant]

REACTIONS (6)
  - ABDOMINAL PAIN [None]
  - CONSTIPATION [None]
  - DYSPEPSIA [None]
  - GASTRIC POLYPS [None]
  - GASTRITIS [None]
  - HAEMORRHOIDS [None]
